FAERS Safety Report 25169048 (Version 2)
Quarter: 2025Q2

REPORT INFORMATION
  Report Type: Spontaneous
  Country: CA (occurrence: CA)
  Receive Date: 20250407
  Receipt Date: 20250507
  Transmission Date: 20250716
  Serious: Yes (Other)
  Sender: PFIZER
  Company Number: CA-PFIZER INC-202500072058

PATIENT
  Age: 58 Year
  Sex: Female

DRUGS (4)
  1. CIBINQO [Suspect]
     Active Substance: ABROCITINIB
     Indication: Dermatitis atopic
     Dosage: 200 MG,  1X/DAY
     Route: 048
     Dates: start: 20240914, end: 202505
  2. CLOBETASOL [Concomitant]
     Active Substance: CLOBETASOL
  3. PROTOPIC [Concomitant]
     Active Substance: TACROLIMUS
  4. ZORYVE [Concomitant]
     Active Substance: ROFLUMILAST

REACTIONS (3)
  - Lower respiratory tract infection [Recovering/Resolving]
  - Thrombosis [Unknown]
  - Cough [Not Recovered/Not Resolved]

NARRATIVE: CASE EVENT DATE: 20250101
